FAERS Safety Report 7488944-8 (Version None)
Quarter: 2011Q1

REPORT INFORMATION
  Report Type: 
  Country: None (occurrence: None)
  Receive Date: 20110316
  Receipt Date: 20090402
  Transmission Date: 20110831
  Serious: Yes (Other)
  Sender: FDA-Public Use
  Company Number: 2009BH005238

PATIENT
  Age: 32 Month
  Sex: Male

DRUGS (7)
  1. SEVOFLURANE [Concomitant]
  2. ALBUTEROL SULFATE AUTOHALER [Concomitant]
  3. MEPERIDINE HCL [Suspect]
     Indication: POSTOPERATIVE ANALGESIA
     Dosage: 6.25 MG;ONCE; 6.25 MG; ONCE; 6.25 MG;ONCE
     Dates: start: 20090311, end: 20090311
  4. MEPERIDINE HCL [Suspect]
     Indication: POSTOPERATIVE ANALGESIA
     Dosage: 6.25 MG;ONCE; 6.25 MG; ONCE; 6.25 MG;ONCE
     Dates: start: 20090311, end: 20090311
  5. MEPERIDINE HCL [Suspect]
     Indication: POSTOPERATIVE ANALGESIA
     Dosage: 6.25 MG;ONCE; 6.25 MG; ONCE; 6.25 MG;ONCE
     Dates: start: 20090311, end: 20090311
  6. DECADRON [Concomitant]
  7. FLOVENT [Concomitant]

REACTIONS (2)
  - APNOEA [None]
  - OXYGEN SATURATION DECREASED [None]
